FAERS Safety Report 26025717 (Version 1)
Quarter: 2025Q4

REPORT INFORMATION
  Report Type: Spontaneous
  Country: US (occurrence: US)
  Receive Date: 20251111
  Receipt Date: 20251111
  Transmission Date: 20260117
  Serious: No
  Sender: ALEXION PHARMACEUTICALS
  Company Number: US-AstraZeneca-CH-00987252A

PATIENT
  Age: 78 Year

DRUGS (1)
  1. TRUQAP [Suspect]
     Active Substance: CAPIVASERTIB
     Dosage: 160 MILLIGRAM

REACTIONS (1)
  - Product supply issue [Recovered/Resolved]

NARRATIVE: CASE EVENT DATE: 20251105
